FAERS Safety Report 4909523-X (Version None)
Quarter: 2006Q1

REPORT INFORMATION
  Report Type: 
  Country: None (occurrence: None)
  Receive Date: 20060213
  Receipt Date: 20060201
  Transmission Date: 20060701
  Serious: Yes (Death, Hospitalization, Disabling)
  Sender: FDA-Public Use
  Company Number: US-MERCK-0602USA00589

PATIENT
  Age: 59 Year
  Sex: Male
  Weight: 92 kg

DRUGS (16)
  1. VIOXX [Suspect]
     Indication: ARTHRITIS
     Route: 048
     Dates: start: 20001111, end: 20040920
  2. VIOXX [Suspect]
     Route: 048
     Dates: start: 20001111, end: 20040920
  3. POTASSIUM CHLORIDE [Concomitant]
     Route: 048
  4. ALBUTEROL [Concomitant]
     Route: 048
  5. NORVASC [Concomitant]
     Route: 048
  6. LASIX [Concomitant]
     Route: 048
  7. LANOXIN [Concomitant]
     Route: 048
  8. ASPIRIN [Concomitant]
     Route: 048
  9. VASOTEC RPD [Concomitant]
     Route: 048
  10. ZOLOFT [Concomitant]
     Route: 048
  11. ISOSORBIDE MONONITRATE [Concomitant]
     Route: 048
  12. HUMULIN 70/30 [Concomitant]
     Route: 065
  13. NITROGLYCERIN [Concomitant]
     Indication: CHEST PAIN
     Route: 060
  14. PEPCID [Concomitant]
     Route: 048
  15. SOMA [Concomitant]
     Route: 048
  16. LORCET-HD [Concomitant]
     Indication: PAIN
     Route: 048

REACTIONS (45)
  - ABDOMINAL PAIN [None]
  - ACUTE MYOCARDIAL INFARCTION [None]
  - ACUTE PRERENAL FAILURE [None]
  - AGITATION [None]
  - ANGINA UNSTABLE [None]
  - ARTERIOSCLEROSIS [None]
  - ATRIAL FIBRILLATION [None]
  - BLOOD GLUCOSE INCREASED [None]
  - BLOOD POTASSIUM DECREASED [None]
  - BLOOD PRESSURE INCREASED [None]
  - BODY TEMPERATURE INCREASED [None]
  - BRADYCARDIA [None]
  - CARDIAC FAILURE CONGESTIVE [None]
  - CHEST PAIN [None]
  - CONFUSIONAL STATE [None]
  - CORONARY ARTERY DISEASE [None]
  - DEHYDRATION [None]
  - DIABETES MELLITUS INSULIN-DEPENDENT [None]
  - DIARRHOEA [None]
  - DRUG INTOLERANCE [None]
  - DYSLIPIDAEMIA [None]
  - ELECTROCARDIOGRAM ABNORMAL [None]
  - GASTROOESOPHAGEAL REFLUX DISEASE [None]
  - HEART RATE INCREASED [None]
  - HYPERGLYCAEMIA [None]
  - HYPERLIPIDAEMIA [None]
  - HYPOKALAEMIA [None]
  - HYPOTENSION [None]
  - IMPLANT SITE EFFUSION [None]
  - IMPLANTABLE DEFIBRILLATOR MALFUNCTION [None]
  - ISCHAEMIC CARDIOMYOPATHY [None]
  - MUSCULOSKELETAL PAIN [None]
  - MYOCARDIAL INFARCTION [None]
  - MYOCARDIAL ISCHAEMIA [None]
  - NAUSEA [None]
  - PERIPHERAL ARTERIAL OCCLUSIVE DISEASE [None]
  - PRURITUS [None]
  - RASH [None]
  - RENAL FAILURE [None]
  - SICK SINUS SYNDROME [None]
  - SYNCOPE [None]
  - THERAPEUTIC AGENT TOXICITY [None]
  - THROMBOSIS [None]
  - VENTRICULAR TACHYCARDIA [None]
  - VOMITING [None]
